FAERS Safety Report 15659111 (Version 1)
Quarter: 2018Q4

REPORT INFORMATION
  Report Type: Spontaneous
  Country: RU (occurrence: RU)
  Receive Date: 20181127
  Receipt Date: 20181127
  Transmission Date: 20190205
  Serious: Yes (Death)
  Sender: FDA-Public Use
  Company Number: RU-SAKK-2018SA320984AA

PATIENT
  Age: 54 Year
  Weight: 74 kg

DRUGS (2)
  1. CEREZYME [Suspect]
     Active Substance: IMIGLUCERASE
     Dosage: 800 IU, QOW
     Route: 041
     Dates: start: 2016
  2. CEREZYME [Suspect]
     Active Substance: IMIGLUCERASE
     Dosage: UNK
     Route: 041
     Dates: start: 2012

REACTIONS (1)
  - Accidental death [Fatal]
